FAERS Safety Report 8026800-7 (Version None)
Quarter: 2011Q4

REPORT INFORMATION
  Report Type: 
  Country: None (occurrence: None)
  Receive Date: 20111130
  Receipt Date: 20110801
  Transmission Date: 20120403
  Serious: Yes (Other)
  Sender: FDA-Public Use
  Company Number: US201002003361

PATIENT
  Sex: Male
  Weight: 87.1 kg

DRUGS (26)
  1. LEVEMIR [Concomitant]
  2. LISINOPRIL [Concomitant]
  3. CARVEDILOL [Concomitant]
  4. AMBEIN CR (ZOLPIDEM TARTRATE) [Concomitant]
  5. ZINC [Concomitant]
  6. ISOSORBIDE DINITRATE [Concomitant]
  7. SOMA [Concomitant]
  8. BYETTA [Suspect]
     Dosage: 5 UG, BID; 10 UG, BID
     Dates: start: 20070801
  9. BYETTA [Suspect]
     Dosage: 5 UG, BID; 10 UG, BID
     Dates: end: 20100201
  10. ASPIRIN [Concomitant]
  11. PLAVIX [Concomitant]
  12. FISH OIL [Concomitant]
  13. ACETONEL (RISEDRONATE SODIUM) [Concomitant]
  14. VITAMIN D [Concomitant]
  15. OXYCODONE HCL [Concomitant]
  16. CRESTOR [Concomitant]
  17. FLOMAX [Concomitant]
  18. CALCIUM + VITAMIN D (CALCIUM, COLECALCIFEROL) [Concomitant]
  19. ALEVE [Concomitant]
  20. EXENATIDE (EXENATIDE PEN, DISPOSABLE) [Concomitant]
  21. NITROGLYCERN (GLYCERYL TRINITRATE) [Concomitant]
  22. CHROMIUM CHLORIDE [Concomitant]
  23. NOVOLOG [Concomitant]
  24. FOLIC ACID [Concomitant]
  25. VITAMIN C (ASORBIC ACID) [Concomitant]
  26. IMDUR [Concomitant]

REACTIONS (2)
  - NEPHROPATHY [None]
  - OFF LABEL USE [None]
